FAERS Safety Report 12789444 (Version 1)
Quarter: 2016Q3

REPORT INFORMATION
  Report Type: Spontaneous
  Country: GB (occurrence: GB)
  Receive Date: 20160928
  Receipt Date: 20160928
  Transmission Date: 20161109
  Serious: Yes (Death)
  Sender: FDA-Public Use
  Company Number: PHHY2016GB132445

PATIENT
  Age: 10 Month
  Sex: Male

DRUGS (2)
  1. OCTREOTIDE. [Suspect]
     Active Substance: OCTREOTIDE
     Indication: CHYLOTHORAX
  2. OCTREOTIDE. [Suspect]
     Active Substance: OCTREOTIDE
     Indication: TRISOMY 21
     Dosage: UNK
     Route: 041

REACTIONS (2)
  - Chylothorax [Fatal]
  - Product use issue [Unknown]
